FAERS Safety Report 6667123-8 (Version None)
Quarter: 2010Q2

REPORT INFORMATION
  Report Type: 
  Country: None (occurrence: None)
  Receive Date: 20100401
  Receipt Date: 20100322
  Transmission Date: 20101027
  Serious: Yes (Disabling, Other)
  Sender: FDA-Public Use
  Company Number: 2010AL001697

PATIENT
  Sex: 0

DRUGS (1)
  1. METOCLOPRAMIDE [Suspect]
     Indication: GASTRIC DISORDER
     Dosage: PO
     Route: 048

REACTIONS (12)
  - AKATHISIA [None]
  - ANXIETY [None]
  - DYSKINESIA [None]
  - ECONOMIC PROBLEM [None]
  - EXCESSIVE EYE BLINKING [None]
  - EXTRAPYRAMIDAL DISORDER [None]
  - GRIMACING [None]
  - MULTIPLE INJURIES [None]
  - NERVOUS SYSTEM DISORDER [None]
  - PAIN [None]
  - TARDIVE DYSKINESIA [None]
  - TONGUE DISORDER [None]
